FAERS Safety Report 7320842-2 (Version None)
Quarter: 2011Q1

REPORT INFORMATION
  Report Type: 
  Country: None (occurrence: None)
  Receive Date: 20110228
  Receipt Date: 20110218
  Transmission Date: 20110831
  Serious: Yes (Hospitalization)
  Sender: FDA-Public Use
  Company Number: CO-ROCHE-760703

PATIENT
  Sex: Male

DRUGS (3)
  1. TACROLIMUS [Concomitant]
     Route: 048
  2. PREDNISOLONE [Concomitant]
     Dosage: FREQUENCY: DAILY
     Route: 048
  3. CELLCEPT [Suspect]
     Indication: LIVER TRANSPLANT
     Dosage: FREQUENCY: DAILY
     Route: 048
     Dates: start: 20090907

REACTIONS (1)
  - TRANSPLANT REJECTION [None]
